FAERS Safety Report 14046758 (Version 2)
Quarter: 2017Q4

REPORT INFORMATION
  Report Type: Report from Study
  Country: AR (occurrence: AR)
  Receive Date: 20171005
  Receipt Date: 20171016
  Transmission Date: 20180321
  Serious: Yes (Death, Hospitalization, Other)
  Sender: FDA-Public Use
  Company Number: PHHY2017AR146196

PATIENT
  Age: 66 Year
  Sex: Male

DRUGS (2)
  1. ENTRESTO [Suspect]
     Active Substance: SACUBITRIL\VALSARTAN
     Indication: CARDIAC FAILURE CHRONIC
     Dosage: 50 MG, BID
     Route: 065
     Dates: start: 20160819, end: 20170206
  2. PROCORALAN [Concomitant]
     Active Substance: IVABRADINE
     Indication: PRODUCT USED FOR UNKNOWN INDICATION
     Dosage: UNK
     Route: 065

REACTIONS (10)
  - Dyspnoea [Unknown]
  - Fall [Unknown]
  - Therapy non-responder [Unknown]
  - Gastrointestinal inflammation [Unknown]
  - Cardiac fibrillation [Unknown]
  - Dysuria [Fatal]
  - Syncope [Unknown]
  - Musculoskeletal chest pain [Unknown]
  - Depressed mood [Unknown]
  - Renal failure [Fatal]

NARRATIVE: CASE EVENT DATE: 201611
